FAERS Safety Report 7640405-9 (Version None)
Quarter: 2011Q3

REPORT INFORMATION
  Report Type: 
  Country: None (occurrence: None)
  Receive Date: 20110728
  Receipt Date: 20110721
  Transmission Date: 20111222
  Serious: Yes (Hospitalization)
  Sender: FDA-Public Use
  Company Number: US-BIOGENIDEC-2011BI021361

PATIENT
  Sex: Female

DRUGS (3)
  1. AVONEX [Suspect]
     Route: 030
     Dates: start: 20040430
  2. TYSABRI [Concomitant]
     Indication: MULTIPLE SCLEROSIS
     Route: 042
     Dates: start: 20080529, end: 20080529
  3. AVONEX [Suspect]
     Indication: MULTIPLE SCLEROSIS
     Route: 030
     Dates: start: 20110203, end: 20110509

REACTIONS (5)
  - MULTIPLE SCLEROSIS RELAPSE [None]
  - HYPERTENSION [None]
  - URINARY TRACT INFECTION [None]
  - HEPATIC ENZYME INCREASED [None]
  - GASTROINTESTINAL CANDIDIASIS [None]
